FAERS Safety Report 8883817 (Version 2)
Quarter: 2013Q1

REPORT INFORMATION
  Report Type: Spontaneous
  Country: US (occurrence: US)
  Receive Date: 20121102
  Receipt Date: 20130109
  Transmission Date: 20140127
  Serious: No
  Sender: FDA-Public Use
  Company Number: US-ASTRAZENECA-2012SE07912

PATIENT
  Age: 64 Year
  Sex: Female

DRUGS (3)
  1. CRESTOR [Suspect]
     Indication: BLOOD CHOLESTEROL
     Route: 048
  2. BLOOD PRESSURE PILLS [Concomitant]
  3. STATINS [Concomitant]

REACTIONS (3)
  - Influenza [Unknown]
  - Gastroenteritis viral [Unknown]
  - Musculoskeletal stiffness [Unknown]
